FAERS Safety Report 5724676-1 (Version None)
Quarter: 2008Q2

REPORT INFORMATION
  Report Type: 
  Country: None (occurrence: None)
  Receive Date: 20080501
  Receipt Date: 20080421
  Transmission Date: 20081010
  Serious: Yes (Hospitalization, Other)
  Sender: FDA-Public Use
  Company Number: US-ELI_LILLY_AND_COMPANY-US200804005396

PATIENT
  Sex: Male
  Weight: 86.621 kg

DRUGS (5)
  1. OLANZAPINE [Suspect]
     Dosage: 15 MG, DAILY (1/D)
     Dates: start: 20040101
  2. OLANZAPINE [Interacting]
     Dosage: 10 MG, DAILY (1/D)
  3. TRILEPTAL [Concomitant]
     Dosage: 450 MG, 2/D
     Dates: start: 20030101
  4. CENTRUM [Concomitant]
     Dosage: 1 D/F, DAILY (1/D)
     Dates: start: 20040101
  5. ZINC [Concomitant]
     Dosage: 1 D/F, DAILY (1/D)
     Dates: start: 20050101, end: 20060918

REACTIONS (5)
  - ATAXIA [None]
  - CONFUSIONAL STATE [None]
  - DRUG INTERACTION [None]
  - HYPERTENSION [None]
  - MENTAL STATUS CHANGES [None]
